FAERS Safety Report 5206514-9 (Version None)
Quarter: 2007Q1

REPORT INFORMATION
  Report Type: 
  Country: None (occurrence: None)
  Receive Date: 20070109
  Receipt Date: 20061219
  Transmission Date: 20070707
  Serious: Yes (Hospitalization)
  Sender: FDA-Public Use
  Company Number: GXKR2006US08316

PATIENT
  Age: 15 Year
  Sex: Female

DRUGS (2)
  1. ASPIRIN [Suspect]
     Dosage: 50 TABLETS OF 500 MG
  2. IBUPROFEN [Suspect]

REACTIONS (15)
  - BLOOD BICARBONATE DECREASED [None]
  - BODY TEMPERATURE INCREASED [None]
  - CONVULSION [None]
  - DIZZINESS [None]
  - HAEMODIALYSIS [None]
  - HEART RATE INCREASED [None]
  - INTENTIONAL OVERDOSE [None]
  - NAUSEA [None]
  - PCO2 DECREASED [None]
  - PCO2 INCREASED [None]
  - PO2 INCREASED [None]
  - RESPIRATORY RATE INCREASED [None]
  - SYNCOPE [None]
  - TINNITUS [None]
  - VOMITING [None]
